FAERS Safety Report 4621598-4 (Version None)
Quarter: 2005Q1

REPORT INFORMATION
  Report Type: 
  Country: None (occurrence: None)
  Receive Date: 20050329
  Receipt Date: 20050317
  Transmission Date: 20050727
  Serious: Yes (Other)
  Sender: FDA-Public Use
  Company Number: 2005036899

PATIENT
  Age: 61 Year
  Sex: Female

DRUGS (10)
  1. ZYVOX [Suspect]
     Indication: STAPHYLOCOCCAL INFECTION
     Dosage: 1200 MG (600 MG , BID INTERVAL: EVERY DAY), INTRAVENOUS
     Route: 042
     Dates: start: 20050222, end: 20050223
  2. SERTRALINE HCL [Concomitant]
  3. FUROSEMIDE [Concomitant]
  4. POTASSIUM CHLORIDE [Concomitant]
  5. SPIRONOLACTONE [Concomitant]
  6. VICODIN [Concomitant]
  7. ATORVASTATIN (ATORVASTATIN) [Concomitant]
  8. TRAZODONE HCL [Concomitant]
  9. ALPRAZOLAM [Concomitant]
  10. RISEDRONATE SODIUM (RISEDRONATE SODIUM) [Concomitant]

REACTIONS (2)
  - HYPERTENSION [None]
  - PYREXIA [None]
